FAERS Safety Report 5990828-9 (Version None)
Quarter: 2008Q4

REPORT INFORMATION
  Report Type: 
  Country: None (occurrence: None)
  Receive Date: 20081202
  Receipt Date: 20071116
  Transmission Date: 20090506
  Serious: Yes (Disabling)
  Sender: FDA-Public Use
  Company Number: WAES 0711USA03735

PATIENT
  Age: 69 Year
  Sex: Female
  Weight: 60.782 kg

DRUGS (2)
  1. FOSAMAX [Suspect]
     Dosage: PO
     Route: 048
     Dates: start: 20010101, end: 20040201
  2. FOSAMAX [Suspect]
     Dosage: 70 MG/WKY/PO ; 70 MG/DAILY/PO
     Route: 048

REACTIONS (13)
  - CARDIAC DISORDER [None]
  - GASTROENTERITIS VIRAL [None]
  - GASTROOESOPHAGEAL REFLUX DISEASE [None]
  - HIATUS HERNIA [None]
  - INAPPROPRIATE SCHEDULE OF DRUG ADMINISTRATION [None]
  - MITRAL VALVE INCOMPETENCE [None]
  - OSTEOMYELITIS [None]
  - OSTEONECROSIS [None]
  - OSTEOPOROSIS [None]
  - OVERDOSE [None]
  - RESORPTION BONE INCREASED [None]
  - TOOTH LOSS [None]
  - URTICARIA [None]
